FAERS Safety Report 8178660-1 (Version None)
Quarter: 2012Q1

REPORT INFORMATION
  Report Type: 
  Country: None (occurrence: None)
  Receive Date: 20120301
  Receipt Date: 20120221
  Transmission Date: 20120608
  Serious: Yes (Other)
  Sender: FDA-Public Use
  Company Number: DE-ELI_LILLY_AND_COMPANY-DE201202006167

PATIENT
  Sex: Male

DRUGS (3)
  1. GLIMEPIRID [Concomitant]
  2. METFORMIN HCL [Concomitant]
  3. BYDUREON [Suspect]
     Indication: DIABETES MELLITUS
     Dosage: 2 MG, WEEKLY (1/W)
     Route: 058
     Dates: start: 20120101

REACTIONS (3)
  - EYE HAEMORRHAGE [None]
  - BLOOD GLUCOSE INCREASED [None]
  - VISUAL ACUITY REDUCED [None]
